FAERS Safety Report 11043753 (Version 1)
Quarter: 2015Q2

REPORT INFORMATION
  Report Type: Report from Study
  Country: US (occurrence: US)
  Receive Date: 20150417
  Receipt Date: 20150417
  Transmission Date: 20150821
  Serious: Yes (Hospitalization, Other)
  Sender: FDA-Public Use
  Company Number: US-ASTRAZENECA-2015SE35695

PATIENT
  Sex: Male

DRUGS (1)
  1. LYNPARZA [Suspect]
     Active Substance: OLAPARIB
     Indication: PROSTATE CANCER
     Route: 048

REACTIONS (5)
  - Pancytopenia [Unknown]
  - Swelling face [Unknown]
  - Pain [Unknown]
  - Fatigue [Unknown]
  - Oedema peripheral [Unknown]
